FAERS Safety Report 16942394 (Version 1)
Quarter: 2019Q4

REPORT INFORMATION
  Report Type: Report from Study
  Country: US (occurrence: US)
  Receive Date: 20191021
  Receipt Date: 20191021
  Transmission Date: 20200122
  Serious: Yes (Death)
  Sender: FDA-Public Use
  Company Number: US-EXELIXIS-CABO-19022022

PATIENT
  Age: 77 Year
  Sex: Male

DRUGS (2)
  1. AMLODIPINE BESILATE [Concomitant]
     Active Substance: AMLODIPINE BESYLATE
     Dosage: UNK
  2. CABOMETYX [Suspect]
     Active Substance: CABOZANTINIB S-MALATE
     Indication: HEPATOCELLULAR CARCINOMA
     Dosage: 60 MG, QD
     Route: 048
     Dates: start: 20190427

REACTIONS (3)
  - Abdominal discomfort [Unknown]
  - Diarrhoea [Recovering/Resolving]
  - Death [Fatal]

NARRATIVE: CASE EVENT DATE: 20191011
